FAERS Safety Report 14256239 (Version 2)
Quarter: 2018Q1

REPORT INFORMATION
  Report Type: Spontaneous
  Country: US (occurrence: US)
  Receive Date: 20171206
  Receipt Date: 20180122
  Transmission Date: 20180508
  Serious: Yes (Disabling, Other)
  Sender: FDA-Public Use
  Company Number: US-REGENERON PHARMACEUTICALS, INC.-2017-28054

PATIENT

DRUGS (3)
  1. LEVOTHYROXINE. [Concomitant]
     Active Substance: LEVOTHYROXINE
     Indication: PRODUCT USED FOR UNKNOWN INDICATION
  2. EYLEA [Suspect]
     Active Substance: AFLIBERCEPT
     Indication: NEOVASCULAR AGE-RELATED MACULAR DEGENERATION
     Dosage: 2 MG, MONTHLY; THEN 3 MONTHS THEN 5 MONTHS THEN MONTHLY
     Route: 031
     Dates: start: 20161018
  3. EYLEA [Suspect]
     Active Substance: AFLIBERCEPT
     Dosage: 2 MG
     Route: 031
     Dates: start: 20171122, end: 20171122

REACTIONS (4)
  - Vitreal cells [Unknown]
  - Blindness unilateral [Unknown]
  - Endophthalmitis [Unknown]
  - Eye inflammation [Unknown]

NARRATIVE: CASE EVENT DATE: 20171127
